FAERS Safety Report 10404136 (Version 1)
Quarter: 2014Q1

REPORT INFORMATION
  Report Type: Spontaneous
  Country: US (occurrence: None)
  Receive Date: 20131211
  Receipt Date: 20131211
  Transmission Date: 20141002
  Serious: Yes (Hospitalization)
  Sender: FDA-Public Use
  Company Number: ALL1-2009-03117

PATIENT
  Age: 32 Year
  Sex: Female
  Weight: 52.2 kg

DRUGS (2)
  1. VYANSE [Suspect]
     Indication: ATTENTION DEFICIT/HYPERACTIVITY DISORDER
     Route: 048
     Dates: start: 200908, end: 20091004
  2. PRENATAL VITAMINS [Suspect]
     Indication: SUPPLEMENTATION THERAPY
     Dosage: 1X/DAY:QD
     Dates: start: 20091001, end: 20091004

REACTIONS (2)
  - Urticaria [None]
  - Rash generalised [None]
